FAERS Safety Report 25959006 (Version 1)
Quarter: 2025Q4

REPORT INFORMATION
  Report Type: Report from Study
  Country: US (occurrence: US)
  Receive Date: 20251025
  Receipt Date: 20251025
  Transmission Date: 20260117
  Serious: Yes (Other)
  Sender: ABBVIE
  Company Number: US-ABBVIE-6510923

PATIENT
  Age: 44 Year
  Sex: Female

DRUGS (1)
  1. HUMIRA [Suspect]
     Active Substance: ADALIMUMAB
     Indication: Psoriatic arthropathy
     Route: 058
     Dates: start: 2020

REACTIONS (5)
  - Chemotherapy [Unknown]
  - Menstruation normal [Recovered/Resolved]
  - Endometrial ablation [Unknown]
  - Drug hypersensitivity [Unknown]
  - Cardiac disorder [Unknown]
